FAERS Safety Report 9237052 (Version 8)
Quarter: 2015Q1

REPORT INFORMATION
  Report Type: Spontaneous
  Country: US (occurrence: US)
  Receive Date: 20130417
  Receipt Date: 20150219
  Transmission Date: 20150721
  Serious: Yes (Death, Life-Threatening, Hospitalization, Other)
  Sender: FDA-Public Use
  Company Number: US-009507513-1304USA007689

PATIENT
  Sex: Female
  Weight: 92.97 kg

DRUGS (9)
  1. BYETTA [Suspect]
     Active Substance: EXENATIDE
     Indication: TYPE 2 DIABETES MELLITUS
     Dosage: 5 MICROGRAM, BID
     Dates: start: 20060217, end: 20060319
  2. JANUVIA [Suspect]
     Active Substance: SITAGLIPTIN PHOSPHATE
     Indication: TYPE 2 DIABETES MELLITUS
     Dosage: 100 MG, QD
     Route: 048
     Dates: start: 20120511, end: 20121001
  3. BYETTA [Suspect]
     Active Substance: EXENATIDE
     Dosage: 10 MICROGRAM, BID
     Dates: start: 20060315, end: 20070114
  4. BYETTA [Suspect]
     Active Substance: EXENATIDE
     Dosage: 5 MICROGRAM, BID
     Dates: start: 20090126, end: 20100526
  5. BYETTA [Suspect]
     Active Substance: EXENATIDE
     Dosage: 10 MICROGRAM, BID
     Dates: start: 20100615, end: 20111015
  6. NOVOLOG MIX 70/30 [Concomitant]
     Active Substance: INSULIN ASPART
     Indication: TYPE 2 DIABETES MELLITUS
     Dosage: 50 IU, BID
  7. METFORMIN [Concomitant]
     Active Substance: METFORMIN HYDROCHLORIDE
     Indication: TYPE 2 DIABETES MELLITUS
     Dosage: 2500 MG, QD
  8. JANUVIA [Suspect]
     Active Substance: SITAGLIPTIN PHOSPHATE
     Indication: BLOOD GLUCOSE INCREASED
  9. LANTUS [Concomitant]
     Active Substance: INSULIN GLARGINE
     Indication: TYPE 2 DIABETES MELLITUS
     Dosage: 80 IU, QPM

REACTIONS (11)
  - Drug dependence [Unknown]
  - Leukocytosis [Unknown]
  - Asthenia [Unknown]
  - Explorative laparotomy [Unknown]
  - Metastases to liver [Unknown]
  - Adenocarcinoma pancreas [Fatal]
  - Hypovolaemia [Unknown]
  - Diabetes mellitus inadequate control [Unknown]
  - Pancreatitis [Unknown]
  - Gastrooesophageal reflux disease [Unknown]
  - Abdominal pain upper [Unknown]

NARRATIVE: CASE EVENT DATE: 20121001
